FAERS Safety Report 19322235 (Version 1)
Quarter: 2021Q2

REPORT INFORMATION
  Report Type: Spontaneous
  Country: US (occurrence: US)
  Receive Date: 20210528
  Receipt Date: 20210528
  Transmission Date: 20210717
  Serious: Yes (Life-Threatening, Hospitalization, Other)
  Sender: FDA-Public Use
  Company Number: US-DRREDDYS-USA/USA/21/0135859

PATIENT
  Age: 61 Year
  Sex: Female

DRUGS (1)
  1. METOPROLOL SUCCINATE. [Suspect]
     Active Substance: METOPROLOL SUCCINATE
     Indication: STRESS CARDIOMYOPATHY

REACTIONS (4)
  - Phaeochromocytoma [Recovering/Resolving]
  - Hypertension [Recovering/Resolving]
  - Supraventricular tachycardia [Recovering/Resolving]
  - Condition aggravated [Recovering/Resolving]
